FAERS Safety Report 4870779-3 (Version None)
Quarter: 2006Q1

REPORT INFORMATION
  Report Type: 
  Country: None (occurrence: None)
  Receive Date: 20060103
  Receipt Date: 20050926
  Transmission Date: 20060701
  Serious: Yes (Hospitalization, Other)
  Sender: FDA-Public Use
  Company Number: US-MERCK-0509USA04162

PATIENT
  Age: 69 Year
  Sex: Male
  Weight: 87 kg

DRUGS (13)
  1. VIOXX [Suspect]
     Indication: MONARTHRITIS
     Route: 048
     Dates: start: 20010126, end: 20010430
  2. VIOXX [Suspect]
     Route: 048
     Dates: start: 20030815, end: 20031125
  3. VIOXX [Suspect]
     Indication: LIMB DISCOMFORT
     Route: 048
     Dates: start: 20010126, end: 20010430
  4. VIOXX [Suspect]
     Route: 048
     Dates: start: 20030815, end: 20031125
  5. ASPIRIN [Concomitant]
     Route: 048
  6. ASCORBIC ACID [Concomitant]
     Route: 048
  7. CIMETIDINE [Concomitant]
     Route: 048
  8. CLOPIDOGREL BISULFATE [Concomitant]
     Route: 048
  9. GLYBURIDE [Concomitant]
     Route: 048
  10. ISOSORBIDE [Concomitant]
     Route: 048
  11. LISINOPRIL [Concomitant]
     Route: 048
  12. METOPROLOL [Concomitant]
     Route: 048
  13. NIFEDIPINE [Concomitant]
     Route: 048

REACTIONS (6)
  - ACUTE MYOCARDIAL INFARCTION [None]
  - CARDIAC FAILURE CONGESTIVE [None]
  - CAROTID ARTERY DISEASE [None]
  - COLON ADENOMA [None]
  - CORONARY ARTERY DISEASE [None]
  - MYOCARDIAL INFARCTION [None]
